FAERS Safety Report 4833371-2 (Version None)
Quarter: 2005Q4

REPORT INFORMATION
  Report Type: 
  Country: None (occurrence: None)
  Receive Date: 20051117
  Receipt Date: 20051109
  Transmission Date: 20060501
  Serious: Yes (Hospitalization, Disabling)
  Sender: FDA-Public Use
  Company Number: TCI2005A03819

PATIENT
  Age: 69 Year
  Sex: Female

DRUGS (5)
  1. ACTOS [Suspect]
     Indication: DIABETES MELLITUS NON-INSULIN-DEPENDENT
     Dosage: 15 MG (15 MG, 1 IN 1 D)
     Route: 048
     Dates: start: 20040101
  2. BASEN (VOGLIBOSE) [Concomitant]
  3. AMARYL [Concomitant]
  4. METFORMIN HYDROCHLORIDE [Concomitant]
  5. FLUITRAN (TRICHLORMETHIAZIDE) [Concomitant]

REACTIONS (7)
  - CARDIAC FAILURE [None]
  - CORONARY ARTERY DISEASE [None]
  - CORONARY ARTERY STENOSIS [None]
  - HYPERPHAGIA [None]
  - MYOCARDIAL INFARCTION [None]
  - OEDEMA PERIPHERAL [None]
  - WEIGHT INCREASED [None]
